FAERS Safety Report 4712929-5 (Version None)
Quarter: 2005Q3

REPORT INFORMATION
  Report Type: 
  Country: None (occurrence: None)
  Receive Date: 20050711
  Receipt Date: 20050628
  Transmission Date: 20060218
  Serious: Yes (Hospitalization)
  Sender: FDA-Public Use
  Company Number: 2005094134

PATIENT
  Age: 86 Year
  Sex: Male

DRUGS (6)
  1. TAHOR (ATORVASTATIN) [Suspect]
     Indication: HYPERLIPIDAEMIA
     Dosage: 1 DOSE FORM (1 IN 1 D),ORAL
     Route: 048
     Dates: start: 20010316, end: 20050504
  2. NICARDIPINE (NICARDIPINE) [Suspect]
     Indication: ESSENTIAL HYPERTENSION
     Dosage: 100 MG (50 MG 2, IN 1 D), ORAL
     Route: 048
     Dates: start: 19970925
  3. FUROSEMIDE (FUROSEMIDE) [Suspect]
     Indication: ESSENTIAL HYPERTENSION
     Dosage: 40 MG (40 MG, 1 IN 1 D), ORAL
     Route: 048
     Dates: start: 19970925, end: 20050503
  4. SOTALOL HCL [Suspect]
     Indication: ESSENTIAL HYPERTENSION
     Dosage: 160 MG (80 MG, 2 IN 1 D), ORAL
     Route: 048
     Dates: start: 20010915
  5. ENDOTELON (HERBAL EXTRACTS NOS, VITIS VINIFERA) [Suspect]
     Indication: CARDIOVASCULAR DISORDER
     Dosage: 300 MG (150 MG, 2 IN 1 D), ORAL
     Route: 048
     Dates: start: 20000913, end: 20050503
  6. FOSINOPRIL SODIUM [Suspect]
     Indication: ESSENTIAL HYPERTENSION
     Dosage: 20 MG (20 MG, 1 IN 1 D), ORAL
     Route: 048
     Dates: start: 19970925, end: 20050503

REACTIONS (15)
  - CEREBROVASCULAR ACCIDENT [None]
  - DISEASE RECURRENCE [None]
  - DRUG ERUPTION [None]
  - ECZEMA [None]
  - HEPATOCELLULAR DAMAGE [None]
  - HYPOALBUMINAEMIA [None]
  - LEUKOCYTOCLASTIC VASCULITIS [None]
  - PRURITUS [None]
  - PURPURA [None]
  - PYREXIA [None]
  - RASH [None]
  - RASH PAPULAR [None]
  - RASH PUSTULAR [None]
  - RENAL FAILURE [None]
  - THROMBOCYTOPENIA [None]
